FAERS Safety Report 16608893 (Version 1)
Quarter: 2019Q3

REPORT INFORMATION
  Report Type: Spontaneous
  Country: US (occurrence: US)
  Receive Date: 20190720
  Receipt Date: 20190720
  Transmission Date: 20191004
  Serious: Yes (Disabling)
  Sender: FDA-Public Use
  Company Number: None

PATIENT
  Age: 44 Year
  Sex: Female
  Weight: 60.75 kg

DRUGS (7)
  1. MULTIVITAMINS [Concomitant]
     Active Substance: VITAMINS
  2. PROGESTERONE. [Concomitant]
     Active Substance: PROGESTERONE
  3. SLEEP MEDICATION [Concomitant]
     Active Substance: UNSPECIFIED INGREDIENT
  4. LYRICA [Suspect]
     Active Substance: PREGABALIN
     Indication: PUDENDAL CANAL SYNDROME
     Dosage: ?          QUANTITY:1 CAPSULE(S);?
     Route: 048
     Dates: start: 20110801, end: 20120301
  5. GABAPENTIN. [Suspect]
     Active Substance: GABAPENTIN
     Indication: PUDENDAL CANAL SYNDROME
     Dosage: ?          QUANTITY:1 CAPSULE(S);?
     Route: 048
     Dates: start: 20110501, end: 20110801
  6. ESTROGEN [Suspect]
     Active Substance: ESTROGENS
  7. SYNTHROID [Concomitant]
     Active Substance: LEVOTHYROXINE SODIUM

REACTIONS (9)
  - Memory impairment [None]
  - Euphoric mood [None]
  - Premature menopause [None]
  - Lichen sclerosus [None]
  - Hormone level abnormal [None]
  - Abnormal behaviour [None]
  - Narcolepsy [None]
  - Cognitive disorder [None]
  - Weight increased [None]

NARRATIVE: CASE EVENT DATE: 20120701
